FAERS Safety Report 8477984-8 (Version None)
Quarter: 2012Q2

REPORT INFORMATION
  Report Type: 
  Country: None (occurrence: None)
  Receive Date: 20120629
  Receipt Date: 20120614
  Transmission Date: 20120825
  Serious: No
  Sender: FDA-Public Use
  Company Number: US-ASTRAZENECA-2011SE52768

PATIENT
  Age: 52 Year
  Sex: Female
  Weight: 86.2 kg

DRUGS (12)
  1. SEROQUEL [Suspect]
     Indication: MENTAL DISORDER
     Dosage: 100 MG, UNKNOWN FREQUENCY
     Route: 048
  2. SEROQUEL [Suspect]
     Route: 048
  3. SELEXA [Concomitant]
     Indication: MENTAL DISORDER
  4. ATIVAN [Concomitant]
     Indication: MENTAL DISORDER
  5. SEROQUEL [Suspect]
     Dosage: 150 MG, UNKNOWN FREQUENCY
     Route: 048
  6. VICODIN [Concomitant]
  7. NEW SENTRA [Concomitant]
  8. SEROQUEL [Suspect]
     Route: 048
  9. ZANTAX XR [Concomitant]
     Indication: MENTAL DISORDER
  10. THYROID MEDICATION [Concomitant]
  11. BIRTH CONTROL MEDICINE [Concomitant]
  12. VITAMIN D [Concomitant]

REACTIONS (12)
  - HYPOAESTHESIA [None]
  - PARAESTHESIA [None]
  - SINUSITIS [None]
  - INFLUENZA LIKE ILLNESS [None]
  - HYPERHIDROSIS [None]
  - SINUS CONGESTION [None]
  - DYSPNOEA [None]
  - MALAISE [None]
  - PYREXIA [None]
  - PAIN [None]
  - HEADACHE [None]
  - THROAT TIGHTNESS [None]
